FAERS Safety Report 5520197-X (Version None)
Quarter: 2007Q4

REPORT INFORMATION
  Report Type: 
  Country: None (occurrence: None)
  Receive Date: 20071116
  Receipt Date: 20071106
  Transmission Date: 20080405
  Serious: Yes (Other)
  Sender: FDA-Public Use
  Company Number: BR-ABBOTT-07P-020-0424292-00

PATIENT
  Age: 44 Year
  Sex: Female

DRUGS (5)
  1. VALPROIC ACID [Suspect]
     Indication: BIPOLAR DISORDER
  2. CARBAMAZEPINE [Concomitant]
     Indication: DEPRESSION
  3. LAMOTRIGINE [Concomitant]
     Indication: DEPRESSION
  4. LAMOTRIGINE [Concomitant]
  5. LAMOTRIGINE [Concomitant]

REACTIONS (2)
  - DEPRESSION [None]
  - MOOD SWINGS [None]
